FAERS Safety Report 10005215 (Version 1)
Quarter: 2014Q1

REPORT INFORMATION
  Report Type: Spontaneous
  Country: FR (occurrence: FR)
  Receive Date: 20140312
  Receipt Date: 20140312
  Transmission Date: 20141002
  Serious: Yes (Other)
  Sender: FDA-Public Use
  Company Number: FR-US-EMD SERONO, INC.-7272844

PATIENT
  Sex: 0

DRUGS (1)
  1. INTERFERON BETA [Suspect]
     Indication: MULTIPLE SCLEROSIS

REACTIONS (1)
  - Breast cancer [Unknown]
